FAERS Safety Report 6033055-1 (Version None)
Quarter: 2009Q1

REPORT INFORMATION
  Report Type: 
  Country: None (occurrence: None)
  Receive Date: 20090109
  Receipt Date: 20081230
  Transmission Date: 20090719
  Serious: Yes (Other)
  Sender: FDA-Public Use
  Company Number: DE-PFIZER INC-2008150696

PATIENT

DRUGS (4)
  1. LYRICA [Suspect]
     Indication: PAIN
     Dosage: 150 PER DAY
     Route: 048
     Dates: start: 20080828, end: 20081107
  2. COPAXONE [Concomitant]
     Indication: MULTIPLE SCLEROSIS
     Dosage: 20MG PER DAY
     Route: 058
     Dates: start: 20080407
  3. PREDNISOLONE [Concomitant]
     Indication: MULTIPLE SCLEROSIS
     Dosage: 1000MG PER DAY
     Route: 042
  4. CONTRACEPTIVE, UNSPECIFIED [Concomitant]

REACTIONS (1)
  - TRANSAMINASES INCREASED [None]
